FAERS Safety Report 8353997 (Version 2)
Quarter: 2015Q1

REPORT INFORMATION
  Report Type: Spontaneous
  Country: US (occurrence: US)
  Receive Date: 20120125
  Receipt Date: 20150313
  Transmission Date: 20150721
  Serious: Yes (Other)
  Sender: FDA-Public Use
  Company Number: US-ROCHE-1006939

PATIENT
  Sex: Male
  Weight: 95.34 kg

DRUGS (10)
  1. ACCUTANE [Suspect]
     Active Substance: ISOTRETINOIN
     Indication: PRODUCT USED FOR UNKNOWN INDICATION
     Route: 065
     Dates: start: 199607, end: 199611
  2. TETRACYCLINE [Concomitant]
     Active Substance: TETRACYCLINE
     Route: 065
     Dates: start: 1996
  3. ACCUTANE [Suspect]
     Active Substance: ISOTRETINOIN
     Route: 065
     Dates: start: 19980624, end: 19980911
  4. MINOCYCLINE [Concomitant]
     Active Substance: MINOCYCLINE\MINOCYCLINE HYDROCHLORIDE
     Route: 065
     Dates: start: 1996
  5. ACCUTANE [Suspect]
     Active Substance: ISOTRETINOIN
     Route: 065
     Dates: start: 19980411, end: 199805
  6. ACCUTANE [Suspect]
     Active Substance: ISOTRETINOIN
     Route: 065
     Dates: start: 19970718
  7. ACCUTANE [Suspect]
     Active Substance: ISOTRETINOIN
     Dosage: ALTERNATING DOSES 40 MG/80 MG
     Route: 065
     Dates: start: 19990218, end: 19990514
  8. ACCUTANE [Suspect]
     Active Substance: ISOTRETINOIN
     Route: 065
     Dates: start: 199703, end: 199707
  9. ACCUTANE [Suspect]
     Active Substance: ISOTRETINOIN
     Route: 065
     Dates: start: 19981202, end: 199902
  10. ACCUTANE [Suspect]
     Active Substance: ISOTRETINOIN
     Route: 065
     Dates: start: 19980527, end: 199806

REACTIONS (7)
  - Colitis ulcerative [Unknown]
  - Inflammatory bowel disease [Unknown]
  - Emotional distress [Unknown]
  - Crohn^s disease [Unknown]
  - Depression [Unknown]
  - Anxiety [Unknown]
  - Anal fissure [Unknown]

NARRATIVE: CASE EVENT DATE: 2003
